FAERS Safety Report 7812576-2 (Version None)
Quarter: 2011Q4

REPORT INFORMATION
  Report Type: 
  Country: None (occurrence: None)
  Receive Date: 20111013
  Receipt Date: 20111011
  Transmission Date: 20120403
  Serious: Yes (Hospitalization)
  Sender: FDA-Public Use
  Company Number: CA-ABBOTT-11P-028-0863308-00

PATIENT
  Sex: Female
  Weight: 104.42 kg

DRUGS (4)
  1. HUMIRA [Suspect]
     Indication: PSORIASIS
     Route: 058
     Dates: start: 20110701
  2. SEROQUEL [Concomitant]
     Indication: DEPRESSION
     Route: 048
     Dates: start: 19710101
  3. ATIVAN [Concomitant]
     Indication: DEPRESSION
     Route: 048
     Dates: start: 19710101
  4. LITHIUM [Concomitant]
     Indication: DEPRESSION
     Route: 048
     Dates: start: 19710101

REACTIONS (1)
  - DEPRESSION [None]
